FAERS Safety Report 4360602-8 (Version None)
Quarter: 2004Q2

REPORT INFORMATION
  Report Type: 
  Country: None (occurrence: None)
  Receive Date: 20040519
  Receipt Date: 20040317
  Transmission Date: 20050107
  Serious: Yes (Hospitalization, Other)
  Sender: FDA-Public Use
  Company Number: PHNU2004DE01262

PATIENT
  Sex: Female

DRUGS (3)
  1. FEMARA [Concomitant]
     Indication: BREAST CANCER METASTATIC
     Dosage: 2.5 MG, QD
     Dates: start: 20030101
  2. AREDIA [Suspect]
     Indication: METASTASES TO BONE
     Dosage: UNKNOWN
     Dates: start: 20030901, end: 20031201
  3. ZOMETA [Suspect]
     Dosage: UNKNOWN
     Route: 042
     Dates: start: 20040101

REACTIONS (5)
  - BLOOD CREATININE INCREASED [None]
  - DIALYSIS [None]
  - GLOMERULAR FILTRATION RATE DECREASED [None]
  - OLIGURIA [None]
  - RENAL FAILURE ACUTE [None]
